FAERS Safety Report 23200135 (Version 1)
Quarter: 2023Q4

REPORT INFORMATION
  Report Type: Spontaneous
  Country: US (occurrence: US)
  Receive Date: 20231118
  Receipt Date: 20231118
  Transmission Date: 20240110
  Serious: Yes (Hospitalization, Other)
  Sender: FDA-Public Use
  Company Number: US-AMGEN-USASP2023203571

PATIENT
  Age: 84 Year
  Sex: Female

DRUGS (1)
  1. CINACALCET HYDROCHLORIDE [Suspect]
     Active Substance: CINACALCET HYDROCHLORIDE
     Indication: Hyperparathyroidism tertiary
     Dosage: UNK
     Route: 065

REACTIONS (5)
  - Parathyroid tumour benign [Unknown]
  - Hungry bone syndrome [Unknown]
  - Osteoporosis [Unknown]
  - Drug resistance [Unknown]
  - Off label use [Unknown]
